FAERS Safety Report 6119689-4 (Version None)
Quarter: 2009Q1

REPORT INFORMATION
  Report Type: 
  Country: None (occurrence: None)
  Receive Date: 20090316
  Receipt Date: 20090310
  Transmission Date: 20090719
  Serious: Yes (Hospitalization, Other)
  Sender: FDA-Public Use
  Company Number: CA-ABBOTT-09P-028-0561783-00

PATIENT
  Sex: Female
  Weight: 52.664 kg

DRUGS (15)
  1. HUMIRA [Suspect]
     Indication: RHEUMATOID ARTHRITIS
     Route: 058
     Dates: start: 20070205, end: 20080921
  2. CENTRUM FORTE [Concomitant]
     Indication: DRUG USE FOR UNKNOWN INDICATION
  3. CALTRATE PLUS [Concomitant]
     Indication: DRUG USE FOR UNKNOWN INDICATION
  4. HYDROXYQUININE [Concomitant]
     Indication: DRUG USE FOR UNKNOWN INDICATION
  5. METHOTREXATE [Concomitant]
     Indication: DRUG USE FOR UNKNOWN INDICATION
  6. LEUCOVORIN CALCIUM [Concomitant]
     Indication: DRUG USE FOR UNKNOWN INDICATION
  7. HYZAAR [Concomitant]
     Indication: DRUG USE FOR UNKNOWN INDICATION
     Dosage: FORM:100/25 MG
  8. ASPIRIN [Concomitant]
     Indication: DRUG USE FOR UNKNOWN INDICATION
  9. VIT B6 [Concomitant]
     Indication: DRUG USE FOR UNKNOWN INDICATION
  10. VIT A [Concomitant]
     Indication: DRUG USE FOR UNKNOWN INDICATION
  11. VIT D [Concomitant]
     Indication: DRUG USE FOR UNKNOWN INDICATION
  12. TRAMACET [Concomitant]
     Indication: DRUG USE FOR UNKNOWN INDICATION
  13. SULFASALAZINE [Concomitant]
     Indication: DRUG USE FOR UNKNOWN INDICATION
  14. LOPRESSOR [Concomitant]
     Indication: DRUG USE FOR UNKNOWN INDICATION
  15. EFFEXOR [Concomitant]
     Indication: DRUG USE FOR UNKNOWN INDICATION

REACTIONS (3)
  - BRONCHITIS [None]
  - LIMB OPERATION [None]
  - LOWER LIMB FRACTURE [None]
